FAERS Safety Report 5376410-5 (Version None)
Quarter: 2007Q3

REPORT INFORMATION
  Report Type: 
  Country: None (occurrence: None)
  Receive Date: 20070702
  Receipt Date: 20070620
  Transmission Date: 20080115
  Serious: Yes (Hospitalization)
  Sender: FDA-Public Use
  Company Number: SE-PFIZER INC-2007050504

PATIENT
  Sex: Male

DRUGS (3)
  1. CABASER [Suspect]
     Indication: PARKINSON'S DISEASE
     Route: 048
     Dates: start: 20010531, end: 20070101
  2. LEVODOPA W/BENSERAZIDE/ [Concomitant]
  3. ENTACAPONE [Concomitant]

REACTIONS (3)
  - CHEST PAIN [None]
  - FATIGUE [None]
  - MITRAL VALVE DISEASE [None]
